FAERS Safety Report 6061642-3 (Version None)
Quarter: 2009Q1

REPORT INFORMATION
  Report Type: 
  Country: None (occurrence: None)
  Receive Date: 20090202
  Receipt Date: 20090128
  Transmission Date: 20090719
  Serious: Yes (Hospitalization)
  Sender: FDA-Public Use
  Company Number: A0765488A

PATIENT
  Age: 42 Year
  Sex: Female

DRUGS (2)
  1. MALARONE [Suspect]
     Indication: PROPHYLAXIS
     Route: 048
     Dates: start: 20081226
  2. OSTEOPOROSIS MEDICATION [Concomitant]

REACTIONS (11)
  - AGITATION [None]
  - BIPOLAR I DISORDER [None]
  - BLOOD SODIUM DECREASED [None]
  - COMMUNICATION DISORDER [None]
  - DEPRESSED LEVEL OF CONSCIOUSNESS [None]
  - EMOTIONAL DISORDER [None]
  - FLUID RETENTION [None]
  - HYPERVIGILANCE [None]
  - INSOMNIA [None]
  - MEMORY IMPAIRMENT [None]
  - THINKING ABNORMAL [None]
